FAERS Safety Report 9999316 (Version 2)
Quarter: 2014Q1

REPORT INFORMATION
  Report Type: Spontaneous
  Country: MA (occurrence: None)
  Receive Date: 20140310
  Receipt Date: 20140325
  Transmission Date: 20141002
  Serious: Yes (Other)
  Sender: FDA-Public Use
  Company Number: 2213320

PATIENT
  Sex: Female

DRUGS (2)
  1. (CARBOPLATIN) [Suspect]
     Indication: BREAST CANCER METASTATIC
  2. ONDANSETRON [Concomitant]

REACTIONS (1)
  - Shock [None]
